FAERS Safety Report 11754950 (Version 1)
Quarter: 2015Q4

REPORT INFORMATION
  Report Type: Spontaneous
  Country: US (occurrence: US)
  Receive Date: 20151119
  Receipt Date: 20151119
  Transmission Date: 20160304
  Serious: No
  Sender: FDA-Public Use
  Company Number: US-009507513-1511USA003291

PATIENT
  Age: 34 Year
  Sex: Female
  Weight: 85.72 kg

DRUGS (1)
  1. NEXPLANON [Suspect]
     Active Substance: ETONOGESTREL
     Indication: CONTRACEPTION
     Dosage: IMPLANTED IN LEFT ARM
     Route: 059
     Dates: start: 20151027

REACTIONS (5)
  - Device difficult to use [Not Recovered/Not Resolved]
  - Hypoaesthesia [Unknown]
  - Device dislocation [Not Recovered/Not Resolved]
  - Pain [Not Recovered/Not Resolved]
  - Medical device complication [Not Recovered/Not Resolved]

NARRATIVE: CASE EVENT DATE: 20151028
